FAERS Safety Report 6639713-X (Version None)
Quarter: 2010Q1

REPORT INFORMATION
  Report Type: 
  Country: None (occurrence: None)
  Receive Date: 20100318
  Receipt Date: 20100305
  Transmission Date: 20100710
  Serious: Yes (Hospitalization)
  Sender: FDA-Public Use
  Company Number: PHEH2010US02912

PATIENT
  Age: 64 Year
  Sex: Female

DRUGS (5)
  1. GLEEVEC [Suspect]
     Indication: CHRONIC MYELOID LEUKAEMIA
     Dosage: 400 MG, QD
     Route: 048
     Dates: start: 20100201
  2. CYTARABINE [Suspect]
  3. PROVENTIL [Concomitant]
  4. ISOPTIN [Concomitant]
  5. VALIUM [Concomitant]

REACTIONS (12)
  - BONE PAIN [None]
  - DEHYDRATION [None]
  - DIABETES MELLITUS [None]
  - DIALYSIS [None]
  - DIARRHOEA [None]
  - HYPERTENSION [None]
  - MYALGIA [None]
  - MYOCARDIAL INFARCTION [None]
  - NAUSEA [None]
  - PYREXIA [None]
  - RENAL TUBULAR NECROSIS [None]
  - WHITE BLOOD CELL COUNT INCREASED [None]
